FAERS Safety Report 5804203-0 (Version None)
Quarter: 2008Q3

REPORT INFORMATION
  Report Type: 
  Country: None (occurrence: None)
  Receive Date: 20080709
  Receipt Date: 20080630
  Transmission Date: 20090109
  Serious: Yes (Other)
  Sender: FDA-Public Use
  Company Number: GB-AMGEN-US292660

PATIENT
  Sex: Female
  Weight: 18 kg

DRUGS (2)
  1. ENBREL [Suspect]
     Indication: JUVENILE ARTHRITIS
     Route: 058
     Dates: start: 20040929
  2. PREDNISOLONE [Concomitant]
     Route: 048
     Dates: start: 20040701

REACTIONS (2)
  - ARTHRITIS [None]
  - CONDITION AGGRAVATED [None]
